FAERS Safety Report 10101616 (Version 4)
Quarter: 2014Q2

REPORT INFORMATION
  Report Type: Report from Study
  Country: CA (occurrence: CA)
  Receive Date: 20140424
  Receipt Date: 20140530
  Transmission Date: 20141212
  Serious: Yes (Other)
  Sender: FDA-Public Use
  Company Number: CA-ROCHE-1113549

PATIENT
  Age: 68 Year
  Sex: Female
  Weight: 64.4 kg

DRUGS (17)
  1. RITUXAN [Suspect]
     Indication: RHEUMATOID ARTHRITIS
     Dosage: PREVIOUS DOSE WAS ON 28/JAN/2013.?LAST INFUSION RECEIVED ON : 12/NOV/2013
     Route: 042
     Dates: start: 20110316
  2. PLAQUENIL [Concomitant]
  3. NEXIUM [Concomitant]
  4. ACTONEL [Concomitant]
  5. CELEBREX [Concomitant]
  6. ZOPICLONE [Concomitant]
  7. GABAPENTIN [Concomitant]
  8. PREDNISONE [Concomitant]
  9. DIPHENHYDRAMINE HCL [Concomitant]
     Indication: PREMEDICATION
     Dosage: LAST DOSE ON 16/MAR/2011
     Route: 048
     Dates: start: 20111004
  10. DIPHENHYDRAMINE HCL [Concomitant]
     Dosage: 16/MAR/2011
     Route: 048
  11. METHYLPREDNISOLONE [Concomitant]
     Indication: PREMEDICATION
     Dosage: LAST DOSE ON 16/MAR/2011
     Route: 042
     Dates: start: 20111004, end: 20111004
  12. METHYLPREDNISOLONE [Concomitant]
     Route: 042
  13. TYLENOL [Concomitant]
     Dosage: 2 TABLETS
     Route: 065
     Dates: start: 20110316
  14. SYMBICORT [Concomitant]
  15. ACETAMINOPHEN [Concomitant]
     Indication: PREMEDICATION
     Route: 048
     Dates: start: 20110316
  16. TYLENOL #3 (CANADA) [Concomitant]
  17. TYLENOL EXTRA STRENGTH [Concomitant]

REACTIONS (16)
  - Hypertension [Unknown]
  - Gastrooesophageal reflux disease [Unknown]
  - Drug effect decreased [Unknown]
  - Cough [Not Recovered/Not Resolved]
  - Flushing [Unknown]
  - Pain [Unknown]
  - Somnolence [Unknown]
  - Drug ineffective [Unknown]
  - Swelling face [Unknown]
  - Pain [Unknown]
  - Upper respiratory tract infection [Not Recovered/Not Resolved]
  - Somnolence [Recovered/Resolved]
  - Arthralgia [Unknown]
  - Joint swelling [Unknown]
  - Diarrhoea [Unknown]
  - Tooth fracture [Unknown]
